FAERS Safety Report 4553226-0 (Version None)
Quarter: 2005Q1

REPORT INFORMATION
  Report Type: 
  Country: None (occurrence: None)
  Receive Date: 20050113
  Receipt Date: 20041229
  Transmission Date: 20050727
  Serious: Yes (Other)
  Sender: FDA-Public Use
  Company Number: 8008219

PATIENT
  Age: 21 Year
  Sex: Male

DRUGS (7)
  1. KEPPRA [Suspect]
     Indication: EPILEPSY
     Dosage: 250MG 2/D PO
     Route: 048
     Dates: start: 20041022, end: 20041103
  2. KEPPRA [Suspect]
     Indication: EPILEPSY
     Dosage: 750  MG PO
     Route: 048
     Dates: start: 20041104, end: 20041202
  3. CLONAZEPAM [Concomitant]
  4. VALPROIC ACID [Concomitant]
  5. ETHOSUXAMIDE [Concomitant]
  6. QUETIAPINE [Concomitant]
  7. GABAPENTIN [Concomitant]

REACTIONS (2)
  - EPIDERMOLYSIS BULLOSA [None]
  - SKIN LESION [None]
